FAERS Safety Report 4409489-5 (Version None)
Quarter: 2004Q3

REPORT INFORMATION
  Report Type: 
  Country: None (occurrence: None)
  Receive Date: 20040727
  Receipt Date: 20040727
  Transmission Date: 20050211
  Serious: Yes (Hospitalization, Other)
  Sender: FDA-Public Use
  Company Number: None

PATIENT
  Age: 51 Year
  Weight: 87.9978 kg

DRUGS (12)
  1. LOTREL [Suspect]
     Indication: BLOOD PRESSURE
     Dosage: 5/10 PO Q DAY
     Route: 048
  2. SKELAXIN [Concomitant]
  3. VIOXX [Concomitant]
  4. EFFEXOR XR [Concomitant]
  5. TOPAMAX [Concomitant]
  6. STRATTERA [Concomitant]
  7. MENEST [Concomitant]
  8. LIPITOR [Concomitant]
  9. ADVAIR DISKUS 100/50 [Concomitant]
  10. AVELOX [Concomitant]
  11. NEURONTIN [Concomitant]
  12. ZELNORM [Concomitant]

REACTIONS (6)
  - ANAPHYLACTIC REACTION [None]
  - ANGIONEUROTIC OEDEMA [None]
  - DYSPNOEA [None]
  - EPIGLOTTITIS [None]
  - LARYNGEAL OEDEMA [None]
  - OROPHARYNGEAL SWELLING [None]
